FAERS Safety Report 17569453 (Version 1)
Quarter: 2020Q1

REPORT INFORMATION
  Report Type: Report from Study
  Country: US (occurrence: US)
  Receive Date: 20200323
  Receipt Date: 20200323
  Transmission Date: 20200409
  Serious: Yes (Hospitalization)
  Sender: FDA-Public Use
  Company Number: US-ROCHE-2570013

PATIENT
  Age: 61 Year
  Sex: Female
  Weight: 68.2 kg

DRUGS (2)
  1. OBINUTUZUMAB. [Suspect]
     Active Substance: OBINUTUZUMAB
     Indication: CHRONIC LYMPHOCYTIC LEUKAEMIA
     Dosage: 100 MG IV ON DAY 1, CYCLE 1; 900 MG IV ON DAY 2, CYCLE ;1000 MG IV ON DAY 8, CYCLE; 1000 MG IV ON DA
     Route: 042
     Dates: start: 20191016
  2. IBRUTINIB [Suspect]
     Active Substance: IBRUTINIB
     Indication: CHRONIC LYMPHOCYTIC LEUKAEMIA
     Dosage: MOST RECENT DOSE (980 MG) OF IBRUTINIB: 19/FEB/2020
     Route: 048
     Dates: start: 20191016

REACTIONS (1)
  - Atrial fibrillation [Recovered/Resolved with Sequelae]

NARRATIVE: CASE EVENT DATE: 20200221
